FAERS Safety Report 5750298-2 (Version None)
Quarter: 2008Q2

REPORT INFORMATION
  Report Type: 
  Country: None (occurrence: None)
  Receive Date: 20080522
  Receipt Date: 20080522
  Transmission Date: 20081010
  Serious: Yes (Other)
  Sender: FDA-Public Use
  Company Number: None

PATIENT
  Sex: Female
  Weight: 51.2565 kg

DRUGS (2)
  1. RITONAVIR [Suspect]
     Indication: HIV INFECTION
     Dosage: 100MG DAILY PO
     Route: 048
     Dates: start: 20080226, end: 20080521
  2. QUETIAPINE  600MG [Suspect]
     Indication: DEPRESSION
     Dosage: 600MG DAILY PO
     Route: 048
     Dates: start: 20080101, end: 20080301

REACTIONS (6)
  - CONFUSIONAL STATE [None]
  - DRUG INTERACTION [None]
  - DRUG LEVEL INCREASED [None]
  - LETHARGY [None]
  - MENTAL STATUS CHANGES [None]
  - SOMNOLENCE [None]
